FAERS Safety Report 13411982 (Version 3)
Quarter: 2023Q1

REPORT INFORMATION
  Report Type: Spontaneous
  Country: US (occurrence: US)
  Receive Date: 20170406
  Receipt Date: 20230327
  Transmission Date: 20230418
  Serious: No
  Sender: FDA-Public Use
  Company Number: US-JNJFOC-20170316558

PATIENT
  Sex: Male

DRUGS (16)
  1. RISPERDAL [Suspect]
     Active Substance: RISPERIDONE
     Indication: Schizoaffective disorder
     Dosage: VARYING DOSE OF 0.5 MG TO 1 MG
     Route: 048
     Dates: start: 20100503, end: 20101124
  2. RISPERDAL [Suspect]
     Active Substance: RISPERIDONE
     Route: 048
     Dates: start: 20100503, end: 20130827
  3. INVEGA [Suspect]
     Active Substance: PALIPERIDONE
     Indication: Obsessive-compulsive disorder
     Route: 048
     Dates: start: 20100503, end: 20130827
  4. INVEGA [Suspect]
     Active Substance: PALIPERIDONE
     Indication: Psychotic disorder
     Dosage: VARYING DOSE OF 6 MG TO 9 MG
     Route: 048
     Dates: start: 20121113, end: 20140316
  5. INVEGA [Suspect]
     Active Substance: PALIPERIDONE
     Indication: Bipolar disorder
     Route: 048
     Dates: start: 20130925
  6. INVEGA [Suspect]
     Active Substance: PALIPERIDONE
     Indication: Schizoaffective disorder
  7. RISPERIDONE [Suspect]
     Active Substance: RISPERIDONE
     Indication: Product used for unknown indication
     Route: 048
     Dates: start: 20100503, end: 20130827
  8. RISPERIDONE [Suspect]
     Active Substance: RISPERIDONE
     Dosage: VARYING DOSE OF 1 MG TO 2 MG
     Route: 048
     Dates: start: 20120214, end: 20121029
  9. RISPERDAL CONSTA [Suspect]
     Active Substance: RISPERIDONE
     Indication: Psychotic disorder
     Dosage: VARYING DOSE OF 12.5 MG TO 50 MG
     Route: 030
     Dates: start: 20120110, end: 20120410
  10. RISPERDAL CONSTA [Suspect]
     Active Substance: RISPERIDONE
     Indication: Bipolar disorder
  11. RISPERDAL CONSTA [Suspect]
     Active Substance: RISPERIDONE
     Indication: Schizoaffective disorder
  12. RISPERDAL CONSTA [Suspect]
     Active Substance: RISPERIDONE
     Indication: Obsessive-compulsive disorder
  13. INVEGA SUSTENNA [Suspect]
     Active Substance: PALIPERIDONE PALMITATE
     Indication: Psychotic disorder
     Dosage: VARYING DOSE OF 78 MG TO 234 MG
     Route: 030
     Dates: start: 20110414, end: 20130827
  14. INVEGA SUSTENNA [Suspect]
     Active Substance: PALIPERIDONE PALMITATE
     Indication: Bipolar disorder
  15. INVEGA SUSTENNA [Suspect]
     Active Substance: PALIPERIDONE PALMITATE
     Indication: Schizoaffective disorder
  16. INVEGA SUSTENNA [Suspect]
     Active Substance: PALIPERIDONE PALMITATE
     Indication: Obsessive-compulsive disorder

REACTIONS (2)
  - Gynaecomastia [Unknown]
  - Emotional disorder [Unknown]
